FAERS Safety Report 23036197 (Version 3)
Quarter: 2023Q4

REPORT INFORMATION
  Report Type: Spontaneous
  Country: GB (occurrence: None)
  Receive Date: 20231006
  Receipt Date: 20231114
  Transmission Date: 20240110
  Serious: Yes (Other)
  Sender: FDA-Public Use
  Company Number: GB-ROCHE-3432398

PATIENT
  Age: 87 Year
  Sex: Male

DRUGS (1)
  1. VABYSMO [Suspect]
     Active Substance: FARICIMAB\FARICIMAB-SVOA
     Indication: Product used for unknown indication
     Dosage: FREQUENCY WAS 4 WEEKLY EXTENDING TO 12 WEEKLY
     Route: 050
     Dates: start: 202002, end: 202309

REACTIONS (2)
  - Retinal haemorrhage [Unknown]
  - Visual impairment [Recovered/Resolved]

NARRATIVE: CASE EVENT DATE: 20230901
